FAERS Safety Report 18875766 (Version 1)
Quarter: 2021Q1

REPORT INFORMATION
  Report Type: Spontaneous
  Country: DE (occurrence: DE)
  Receive Date: 20210210
  Receipt Date: 20210210
  Transmission Date: 20210420
  Serious: Yes (Other)
  Sender: FDA-Public Use
  Company Number: NVSC2021DE023571

PATIENT
  Age: 67 Year
  Sex: Female

DRUGS (6)
  1. VALSARTAN COMP [Suspect]
     Active Substance: HYDROCHLOROTHIAZIDE\VALSARTAN
     Indication: HYPERTENSION
     Dosage: UNK (ABZ) (1 DOSAGE FORM CONTAINS 160 MG VALSARTAN AND 12.5 MG HYDROCHLOROTHIAZIDE)
     Route: 048
     Dates: start: 2015, end: 2017
  2. VALSARTAN ? 1 A PHARMA [Suspect]
     Active Substance: VALSARTAN
     Indication: HYPERTENSION
     Dosage: UNK (1 DOSAGE FORM CONTAINS 160 MG VALSARTAN AND 12.5 MG HYDROCHLOROTHIAZIDE)
     Route: 065
     Dates: start: 2013
  3. VALSARTAN HEXAL [Suspect]
     Active Substance: VALSARTAN
     Indication: HYPERTENSION
     Dosage: UNK
     Route: 065
     Dates: start: 2012
  4. VALSARTAN. [Suspect]
     Active Substance: VALSARTAN
     Indication: HYPERTENSION
     Dosage: UNK (ABZ PHARMA)
     Route: 048
     Dates: start: 2018, end: 2018
  5. L?THYROXIN [Concomitant]
     Active Substance: LEVOTHYROXINE SODIUM
     Indication: PRODUCT USED FOR UNKNOWN INDICATION
     Dosage: UNK (100 HENNING)
     Route: 065
  6. SIMVASTATIN ? 1 A PHARMA [Concomitant]
     Active Substance: SIMVASTATIN
     Indication: PRODUCT USED FOR UNKNOWN INDICATION
     Dosage: UNK
     Route: 065

REACTIONS (2)
  - Invasive ductal breast carcinoma [Unknown]
  - Product impurity [Unknown]

NARRATIVE: CASE EVENT DATE: 20191216
